FAERS Safety Report 5678926-0 (Version None)
Quarter: 2008Q1

REPORT INFORMATION
  Report Type: 
  Country: None (occurrence: None)
  Receive Date: 20080325
  Receipt Date: 20080311
  Transmission Date: 20080703
  Serious: Yes (Other)
  Sender: FDA-Public Use
  Company Number: US-AVENTIS-200811777US

PATIENT
  Sex: Female

DRUGS (4)
  1. KETEK [Suspect]
     Indication: ASTHMA
     Dates: start: 20050306, end: 20050316
  2. KETEK [Suspect]
     Dates: start: 20050706, end: 20050716
  3. KETEK [Suspect]
     Indication: COUGH
     Dates: start: 20050306, end: 20050316
  4. KETEK [Suspect]
     Dates: start: 20050706, end: 20050716

REACTIONS (6)
  - CHOLECYSTITIS CHRONIC [None]
  - HEPATIC NEOPLASM [None]
  - HEPATIC STEATOSIS [None]
  - HYPERPLASTIC CHOLECYSTOPATHY [None]
  - LOCALISED OEDEMA [None]
  - LYMPHADENOPATHY [None]
